FAERS Safety Report 12185905 (Version 2)
Quarter: 2016Q1

REPORT INFORMATION
  Report Type: Spontaneous
  Country: CA (occurrence: CA)
  Receive Date: 20160317
  Receipt Date: 20160319
  Transmission Date: 20160526
  Serious: Yes (Hospitalization, Other)
  Sender: FDA-Public Use
  Company Number: CA-JNJFOC-20160307178

PATIENT
  Age: 24 Month
  Sex: Male

DRUGS (4)
  1. CHILDRENS TYLENOL [Suspect]
     Active Substance: ACETAMINOPHEN
     Indication: PYREXIA
     Route: 065
     Dates: start: 20160205
  2. CHILDRENS TYLENOL [Suspect]
     Active Substance: ACETAMINOPHEN
     Indication: PAIN
     Route: 065
     Dates: start: 20160205
  3. CHILDRENS ADVIL [Suspect]
     Active Substance: IBUPROFEN
     Indication: PYREXIA
     Dosage: FOR A WEEK
     Route: 065
     Dates: start: 20160205
  4. CHILDRENS ADVIL [Suspect]
     Active Substance: IBUPROFEN
     Indication: PAIN
     Dosage: FOR A WEEK
     Route: 065
     Dates: start: 20160205

REACTIONS (4)
  - Seizure [Recovering/Resolving]
  - Drug effect decreased [Unknown]
  - Condition aggravated [Recovering/Resolving]
  - Loss of consciousness [Recovered/Resolved]

NARRATIVE: CASE EVENT DATE: 20160205
